FAERS Safety Report 9410757 (Version 2)
Quarter: 2013Q3

REPORT INFORMATION
  Report Type: Report from Study
  Country: US (occurrence: US)
  Receive Date: 20130719
  Receipt Date: 20130826
  Transmission Date: 20140515
  Serious: Yes (Hospitalization, Other)
  Sender: FDA-Public Use
  Company Number: US-ABBOTT-13P-163-1118698-00

PATIENT
  Age: 63 Year
  Sex: Male
  Weight: 121.22 kg

DRUGS (9)
  1. HUMIRA [Suspect]
     Indication: PSORIATIC ARTHROPATHY
     Dates: start: 20120914, end: 20130717
  2. COLCRYS [Concomitant]
     Indication: CHONDROCALCINOSIS PYROPHOSPHATE
  3. INDOCIN [Concomitant]
     Indication: ARTHRITIS
  4. PREDNISONE [Concomitant]
     Indication: ARTHRITIS
  5. MAGNESIUM [Concomitant]
     Indication: ASTHENIA
  6. MAGNESIUM [Concomitant]
     Indication: MUSCLE SPASMS
  7. CENTRUM SILVER [Concomitant]
     Indication: PRODUCT USED FOR UNKNOWN INDICATION
     Dosage: DAILY
  8. FISH OIL [Concomitant]
     Indication: PRODUCT USED FOR UNKNOWN INDICATION
  9. MILK THISTLE [Concomitant]
     Indication: HEPATIC FUNCTION ABNORMAL
     Dosage: DAILY

REACTIONS (7)
  - Arthropathy [Not Recovered/Not Resolved]
  - Cellulitis [Recovering/Resolving]
  - Tooth infection [Recovered/Resolved]
  - Localised infection [Recovered/Resolved]
  - Infection [Recovered/Resolved]
  - Cellulitis [Recovering/Resolving]
  - Medication error [Unknown]
